FAERS Safety Report 8418220-8 (Version None)
Quarter: 2012Q2

REPORT INFORMATION
  Report Type: 
  Country: None (occurrence: None)
  Receive Date: 20120607
  Receipt Date: 20120529
  Transmission Date: 20120825
  Serious: Yes (Hospitalization)
  Sender: FDA-Public Use
  Company Number: JP-VERTEX PHARMACEUTICALS INC.-AE-2012-008092

PATIENT
  Age: 53 Year
  Sex: Male

DRUGS (6)
  1. RIBAVIRIN [Concomitant]
     Route: 048
     Dates: start: 20120404, end: 20120525
  2. RABEPRAZOLE SODIUM [Concomitant]
     Route: 048
     Dates: start: 20120525
  3. FAMOTIDINE [Concomitant]
     Route: 048
     Dates: start: 20120409, end: 20120524
  4. PEGINTERFERON ALFA-2B [Concomitant]
     Route: 051
     Dates: start: 20120404, end: 20120525
  5. URSO 250 [Concomitant]
     Route: 048
     Dates: start: 20120525
  6. TELAVIC (TELAPREVIR) [Suspect]
     Indication: HEPATITIS C
     Route: 048
     Dates: start: 20120404, end: 20120523

REACTIONS (1)
  - RASH [None]
